FAERS Safety Report 11134439 (Version 1)
Quarter: 2015Q2

REPORT INFORMATION
  Report Type: Report from Study
  Country: FR (occurrence: FR)
  Receive Date: 20150525
  Receipt Date: 20150525
  Transmission Date: 20150821
  Serious: Yes (Hospitalization, Other)
  Sender: FDA-Public Use
  Company Number: FR-ROCHE-1382795

PATIENT
  Age: 72 Year
  Sex: Female

DRUGS (12)
  1. RITUXIMAB [Suspect]
     Active Substance: RITUXIMAB
     Indication: RHEUMATOID ARTHRITIS
     Dosage: (D15) ON 08-AUG-2008
     Route: 041
     Dates: start: 20080725
  2. AZATHIOPRINE. [Concomitant]
     Active Substance: AZATHIOPRINE
     Route: 065
     Dates: start: 20081127
  3. TAHOR [Concomitant]
     Active Substance: ATORVASTATIN CALCIUM
     Route: 065
     Dates: start: 20101007
  4. METHOTREXATE [Concomitant]
     Active Substance: METHOTREXATE
     Route: 065
     Dates: start: 20090316
  5. PARACETAMOL [Concomitant]
     Active Substance: ACETAMINOPHEN
     Indication: PREMEDICATION
     Route: 065
     Dates: start: 20101029
  6. RITUXIMAB [Suspect]
     Active Substance: RITUXIMAB
     Route: 041
     Dates: start: 20120723
  7. TAHOR [Concomitant]
     Active Substance: ATORVASTATIN CALCIUM
     Indication: PREMEDICATION
     Dosage: 40 MG/L
     Route: 065
     Dates: start: 20101029
  8. RITUXIMAB [Suspect]
     Active Substance: RITUXIMAB
     Route: 041
     Dates: start: 20090316
  9. CORTANCYL [Concomitant]
     Active Substance: PREDNISONE
     Route: 065
     Dates: start: 20090316
  10. METHYLPREDNISOLONE. [Concomitant]
     Active Substance: METHYLPREDNISOLONE
     Indication: PREMEDICATION
     Route: 065
     Dates: start: 20101029
  11. RITUXIMAB [Suspect]
     Active Substance: RITUXIMAB
     Route: 041
     Dates: start: 20090930
  12. RITUXIMAB [Suspect]
     Active Substance: RITUXIMAB
     Route: 041
     Dates: start: 20100330

REACTIONS (22)
  - Pruritus generalised [Recovered/Resolved]
  - Hypogammaglobulinaemia [Recovered/Resolved]
  - Oral herpes [Recovered/Resolved]
  - Rheumatoid arthritis [Recovered/Resolved]
  - Lymphopenia [Recovered/Resolved]
  - Peripheral arterial occlusive disease [Recovering/Resolving]
  - Coronary artery disease [Recovered/Resolved]
  - Infusion related reaction [Recovered/Resolved]
  - Infusion related reaction [Recovered/Resolved]
  - Bronchitis [Recovered/Resolved]
  - Cystitis [Recovered/Resolved]
  - Bronchopneumonia [Unknown]
  - Metatarsalgia [Not Recovered/Not Resolved]
  - Oral herpes [Recovered/Resolved]
  - Cystitis [Recovered/Resolved]
  - Hypercholesterolaemia [Unknown]
  - Lung infection [Recovered/Resolved]
  - Bronchiectasis [Recovered/Resolved]
  - Otorrhoea [Recovered/Resolved]
  - Lymphadenopathy [Unknown]
  - Haemophilus infection [Not Recovered/Not Resolved]
  - Herpes virus infection [Unknown]

NARRATIVE: CASE EVENT DATE: 20080727
